FAERS Safety Report 11990325 (Version 1)
Quarter: 2016Q1

REPORT INFORMATION
  Report Type: Spontaneous
  Country: US (occurrence: US)
  Receive Date: 20160202
  Receipt Date: 20160202
  Transmission Date: 20160526
  Serious: No
  Sender: FDA-Public Use
  Company Number: US-CELGENEUS-USA-2015123307

PATIENT
  Sex: Female
  Weight: 64.47 kg

DRUGS (3)
  1. THALOMID [Suspect]
     Active Substance: THALIDOMIDE
     Route: 048
     Dates: start: 201506
  2. THALOMID [Suspect]
     Active Substance: THALIDOMIDE
     Indication: PLASMA CELL MYELOMA
     Route: 048
     Dates: start: 201502
  3. THALOMID [Suspect]
     Active Substance: THALIDOMIDE
     Route: 048
     Dates: start: 201509, end: 20151119

REACTIONS (4)
  - No adverse event [Unknown]
  - Urine abnormality [Unknown]
  - Fatigue [Unknown]
  - Nasopharyngitis [Unknown]
